FAERS Safety Report 7194295-1 (Version None)
Quarter: 2010Q4

REPORT INFORMATION
  Report Type: 
  Country: None (occurrence: None)
  Receive Date: 20101223
  Receipt Date: 20101213
  Transmission Date: 20110411
  Serious: Yes (Hospitalization, Other)
  Sender: FDA-Public Use
  Company Number: PHHY2010AU84993

PATIENT
  Sex: Male

DRUGS (2)
  1. GLEEVEC [Suspect]
     Indication: CHRONIC MYELOID LEUKAEMIA
     Dosage: 400 MG, PER DAY
     Route: 048
  2. PERINDOPRIL ERBUMINE [Concomitant]

REACTIONS (6)
  - CARDIOMYOPATHY [None]
  - DIZZINESS [None]
  - INFLUENZA [None]
  - MUSCULOSKELETAL PAIN [None]
  - PALPITATIONS [None]
  - PNEUMONIA [None]
